FAERS Safety Report 7320184-5 (Version None)
Quarter: 2011Q1

REPORT INFORMATION
  Report Type: 
  Country: None (occurrence: None)
  Receive Date: 20110228
  Receipt Date: 20110217
  Transmission Date: 20110831
  Serious: Yes (Hospitalization)
  Sender: FDA-Public Use
  Company Number: PHHY2011JP14003

PATIENT
  Age: 70 Year
  Sex: Male

DRUGS (4)
  1. FAMVIR [Suspect]
     Indication: HERPES ZOSTER
     Dosage: 500 MG, TID
     Route: 048
     Dates: start: 20110127, end: 20110128
  2. SELBEX [Concomitant]
     Dosage: UNK
     Route: 048
     Dates: start: 20110127, end: 20110128
  3. LOXONIN [Concomitant]
     Dosage: 180 MG, UNK
     Route: 048
     Dates: start: 20110127, end: 20110128
  4. WARFARIN SODIUM [Concomitant]
     Route: 048

REACTIONS (2)
  - DEPRESSED LEVEL OF CONSCIOUSNESS [None]
  - FEELING ABNORMAL [None]
